FAERS Safety Report 24833125 (Version 7)
Quarter: 2025Q2

REPORT INFORMATION
  Report Type: Report from Study
  Country: US (occurrence: US)
  Receive Date: 20250111
  Receipt Date: 20250610
  Transmission Date: 20250717
  Serious: Yes (Other)
  Sender: IPSEN BIOPHARMACEUTICALS, INC.
  Company Number: US-IPSEN Group, Research and Development-2025-00595

PATIENT
  Age: 43 Year
  Sex: Female

DRUGS (4)
  1. DYSPORT [Suspect]
     Active Substance: ABOBOTULINUMTOXINA
     Indication: Torticollis
     Route: 030
     Dates: start: 20241223, end: 20241223
  2. DYSPORT [Suspect]
     Active Substance: ABOBOTULINUMTOXINA
     Route: 030
     Dates: start: 20250101, end: 20250101
  3. DYSPORT [Suspect]
     Active Substance: ABOBOTULINUMTOXINA
     Route: 030
     Dates: start: 20250324, end: 20250324
  4. TIZANIDINE [Suspect]
     Active Substance: TIZANIDINE
     Indication: Product used for unknown indication
     Route: 065

REACTIONS (17)
  - Dyskinesia [Recovered/Resolved]
  - Headache [Recovered/Resolved]
  - Influenza like illness [Recovered/Resolved]
  - Pain [Recovered/Resolved]
  - Sleep disorder [Recovered/Resolved]
  - Dyskinesia [Not Recovered/Not Resolved]
  - Rash [Not Recovered/Not Resolved]
  - Erythema [Recovered/Resolved]
  - Dry skin [Not Recovered/Not Resolved]
  - Neck pain [Not Recovered/Not Resolved]
  - Erythema [Not Recovered/Not Resolved]
  - Head titubation [Unknown]
  - Swelling [Unknown]
  - Headache [Unknown]
  - Musculoskeletal stiffness [Unknown]
  - Therapeutic product effect decreased [Unknown]
  - Off label use [Unknown]

NARRATIVE: CASE EVENT DATE: 20241223
